FAERS Safety Report 25462772 (Version 2)
Quarter: 2025Q3

REPORT INFORMATION
  Report Type: Spontaneous
  Country: EU (occurrence: EU)
  Receive Date: 20250620
  Receipt Date: 20250728
  Transmission Date: 20251021
  Serious: Yes (Death, Hospitalization, Other)
  Sender: MYLAN
  Company Number: EU-IPSEN Group, Research and Development-2025-13348

PATIENT
  Age: 64 Year
  Sex: Male

DRUGS (11)
  1. EVEROLIMUS [Suspect]
     Active Substance: EVEROLIMUS
     Indication: Product used for unknown indication
  2. LANREOTIDE ACETATE [Suspect]
     Active Substance: LANREOTIDE ACETATE
     Indication: Insulinoma
  3. LANREOTIDE ACETATE [Suspect]
     Active Substance: LANREOTIDE ACETATE
     Indication: Pancreatic neuroendocrine tumour metastatic
  4. LANREOTIDE ACETATE [Suspect]
     Active Substance: LANREOTIDE ACETATE
     Indication: Metastases to liver
  5. PREDNISOLONE [Suspect]
     Active Substance: PREDNISOLONE
     Indication: Pancreatic neuroendocrine tumour metastatic
  6. PREDNISOLONE [Suspect]
     Active Substance: PREDNISOLONE
     Indication: Metastases to liver
  7. DIAZOXIDE [Suspect]
     Active Substance: DIAZOXIDE
     Indication: Pancreatic neuroendocrine tumour metastatic
  8. DIAZOXIDE [Suspect]
     Active Substance: DIAZOXIDE
     Indication: Metastases to liver
  9. OCTREOTIDE [Suspect]
     Active Substance: OCTREOTIDE
     Indication: Pancreatic neuroendocrine tumour metastatic
  10. OCTREOTIDE [Suspect]
     Active Substance: OCTREOTIDE
     Indication: Metastases to liver
  11. DEXTROSE [Concomitant]
     Active Substance: DEXTROSE MONOHYDRATE
     Indication: Hypoglycaemia

REACTIONS (5)
  - Death [Fatal]
  - Pancytopenia [Not Recovered/Not Resolved]
  - Drug ineffective [Unknown]
  - Cardiac failure [Unknown]
  - Hypoglycaemia [Unknown]
